FAERS Safety Report 4354207-2 (Version None)
Quarter: 2004Q2

REPORT INFORMATION
  Report Type: 
  Country: None (occurrence: None)
  Receive Date: 20040506
  Receipt Date: 20040305
  Transmission Date: 20050107
  Serious: Yes (Hospitalization, Other)
  Sender: FDA-Public Use
  Company Number: PHNU2004DE01148

PATIENT
  Age: 16 Year
  Sex: Male
  Weight: 80 kg

DRUGS (1)
  1. VOLTAREN [Suspect]
     Indication: JUVENILE ARTHRITIS
     Dosage: 25 MG, TID
     Route: 048
     Dates: start: 20040301, end: 20040311

REACTIONS (13)
  - CEREBROVASCULAR DISORDER [None]
  - DIPLOPIA [None]
  - DIZZINESS [None]
  - EYE MOVEMENT DISORDER [None]
  - GENERAL PHYSICAL HEALTH DETERIORATION [None]
  - HEADACHE [None]
  - INVESTIGATION ABNORMAL [None]
  - NYSTAGMUS [None]
  - OPHTHALMOPLEGIA [None]
  - SINUSITIS [None]
  - SOMNOLENCE [None]
  - TUBERCULIN TEST POSITIVE [None]
  - VISION BLURRED [None]
